FAERS Safety Report 4266089-8 (Version None)
Quarter: 2004Q1

REPORT INFORMATION
  Report Type: 
  Country: None (occurrence: None)
  Receive Date: 20040106
  Receipt Date: 20031215
  Transmission Date: 20041129
  Serious: Yes (Hospitalization, Other)
  Sender: FDA-Public Use
  Company Number: 03-362-0985

PATIENT
  Sex: Female
  Weight: 65.318 kg

DRUGS (9)
  1. PAMIDRONATE DISODIUM [Suspect]
     Indication: OSTEOPENIA
     Dosage: 30 MG IV Q 3 MONTHS
     Route: 042
     Dates: start: 20020814, end: 20021114
  2. PAMIDRONATE DISODIUM [Suspect]
     Indication: OSTEOPOROSIS
     Dosage: 30 MG IV Q 3 MONTHS
     Route: 042
     Dates: start: 20020814, end: 20021114
  3. PAMIDRONATE DISODIUM [Suspect]
     Indication: OSTEOPENIA
     Dosage: 30 MG IV Q 3 MONTHS
     Route: 042
     Dates: start: 20030220, end: 20030618
  4. PAMIDRONATE DISODIUM [Suspect]
     Indication: OSTEOPOROSIS
     Dosage: 30 MG IV Q 3 MONTHS
     Route: 042
     Dates: start: 20030220, end: 20030618
  5. PAMIDRONATE DISODIUM [Suspect]
     Indication: OSTEOPENIA
     Dosage: 30 MG IV Q 3 MONTHS
     Route: 042
     Dates: start: 20030618, end: 20031210
  6. PAMIDRONATE DISODIUM [Suspect]
     Indication: OSTEOPOROSIS
     Dosage: 30 MG IV Q 3 MONTHS
     Route: 042
     Dates: start: 20030618, end: 20031210
  7. PAMIDRONATE DISODIUM [Suspect]
     Indication: OSTEOPENIA
     Dosage: 30 MG IV Q 3 MONTHS
     Route: 042
     Dates: start: 20030918, end: 20031210
  8. PAMIDRONATE DISODIUM [Suspect]
     Indication: OSTEOPOROSIS
     Dosage: 30 MG IV Q 3 MONTHS
     Route: 042
     Dates: start: 20030918, end: 20031210
  9. LISINOPRIL [Concomitant]

REACTIONS (2)
  - DYSPNOEA [None]
  - HYPERTENSION [None]
